FAERS Safety Report 5074708-1 (Version None)
Quarter: 2006Q3

REPORT INFORMATION
  Report Type: 
  Country: None (occurrence: None)
  Receive Date: 20060803
  Receipt Date: 20060718
  Transmission Date: 20061208
  Serious: Yes (Other)
  Sender: FDA-Public Use
  Company Number: US200607003246

PATIENT
  Age: 19 Year
  Sex: Male

DRUGS (1)
  1. CYMBALTA [Suspect]
     Indication: DEPRESSION
     Dosage: 40 MG
     Dates: start: 20060101, end: 20060101

REACTIONS (3)
  - BLOOD CHOLESTEROL INCREASED [None]
  - GALACTORRHOEA [None]
  - HYPERTENSION [None]
